FAERS Safety Report 6173108-0 (Version None)
Quarter: 2009Q2

REPORT INFORMATION
  Report Type: 
  Country: None (occurrence: None)
  Receive Date: 20090430
  Receipt Date: 20090420
  Transmission Date: 20091009
  Serious: Yes (Death)
  Sender: FDA-Public Use
  Company Number: VN-BAXTER-2009BH005959

PATIENT
  Sex: Female

DRUGS (2)
  1. DIANEAL [Suspect]
     Indication: PERITONEAL DIALYSIS
     Route: 033
     Dates: end: 20090322
  2. DIANEAL [Suspect]
     Route: 033
     Dates: start: 20070208

REACTIONS (2)
  - CARDIAC FAILURE [None]
  - HYPOTENSION [None]
